FAERS Safety Report 8582076-3 (Version None)
Quarter: 2012Q3

REPORT INFORMATION
  Report Type: 
  Country: None (occurrence: None)
  Receive Date: 20120809
  Receipt Date: 20120801
  Transmission Date: 20120928
  Serious: Yes (Hospitalization, Other)
  Sender: FDA-Public Use
  Company Number: FR-PFIZER INC-2012181340

PATIENT
  Age: 46 Year
  Sex: Male

DRUGS (10)
  1. CERTICAN [Concomitant]
     Dosage: UNK
  2. MABTHERA [Suspect]
     Indication: LYMPHOMA
     Dosage: 750 MG, UNK
     Route: 065
     Dates: start: 20120702
  3. TRAMADOL [Concomitant]
     Dosage: UNK
     Dates: end: 20120702
  4. ASPIRIN [Suspect]
     Indication: PRODUCT USED FOR UNKNOWN INDICATION
     Dosage: 75 MG, DAILY
     Route: 048
  5. KETOPROFEN [Suspect]
     Indication: SCIATICA
     Dosage: 100 MG, UNK
     Route: 048
     Dates: start: 20120628, end: 20120702
  6. INSULIN [Concomitant]
     Dosage: UNK
  7. RAMIPRIL [Suspect]
     Indication: HYPERTENSION
     Dosage: 2.5 MG, DAILY
     Route: 048
     Dates: start: 20120628, end: 20120702
  8. REPAGLINIDE [Suspect]
     Indication: TYPE 2 DIABETES MELLITUS
     Dosage: 6 MG, UNK
     Route: 048
     Dates: end: 20120702
  9. PRAVASTATIN [Suspect]
     Indication: DYSLIPIDAEMIA
     Dosage: UNK, DAILY
     Route: 048
     Dates: end: 20120702
  10. ACETAMINOPHEN W/ CODEINE [Suspect]
     Indication: PAIN
     Dosage: UNK
     Route: 048
     Dates: start: 20120628, end: 20120702

REACTIONS (3)
  - HEPATITIS ACUTE [None]
  - PAIN [None]
  - MOTOR DYSFUNCTION [None]
